FAERS Safety Report 6381131-6 (Version None)
Quarter: 2009Q3

REPORT INFORMATION
  Report Type: 
  Country: None (occurrence: None)
  Receive Date: 20090925
  Receipt Date: 20090925
  Transmission Date: 20100115
  Serious: Yes (Other)
  Sender: FDA-Public Use
  Company Number: None

PATIENT

DRUGS (1)
  1. SIMVASTATIN [Suspect]

REACTIONS (4)
  - HYPOTENSION [None]
  - NAUSEA [None]
  - PRODUCT TAMPERING [None]
  - VOMITING [None]
